FAERS Safety Report 25837424 (Version 1)
Quarter: 2025Q3

REPORT INFORMATION
  Report Type: Spontaneous
  Country: CH (occurrence: CH)
  Receive Date: 20250923
  Receipt Date: 20250923
  Transmission Date: 20251020
  Serious: Yes (Hospitalization, Other)
  Sender: ELI LILLY AND COMPANY
  Company Number: None

PATIENT
  Age: 84 Year
  Sex: Female
  Weight: 74.9 kg

DRUGS (1)
  1. BARICITINIB [Suspect]
     Active Substance: BARICITINIB
     Indication: Rheumatoid arthritis
     Dosage: 2 MG, QOD (2 MG 1X/48 HOURS)
     Route: 065
     Dates: start: 2020

REACTIONS (3)
  - Cardiac failure acute [Not Recovered/Not Resolved]
  - Cardiac failure chronic [Unknown]
  - Off label use [Unknown]

NARRATIVE: CASE EVENT DATE: 20250619
